FAERS Safety Report 5083754-3 (Version None)
Quarter: 2006Q3

REPORT INFORMATION
  Report Type: 
  Country: None (occurrence: None)
  Receive Date: 20060818
  Receipt Date: 20060809
  Transmission Date: 20061208
  Serious: Yes (Hospitalization)
  Sender: FDA-Public Use
  Company Number: US-ABBOTT-06P-163-0339899-00

PATIENT
  Sex: Female

DRUGS (4)
  1. HUMIRA [Suspect]
     Indication: RHEUMATOID ARTHRITIS
     Route: 058
     Dates: start: 20051124
  2. HYDROXYCHLOROQUINE PHOSPHATE [Concomitant]
     Indication: RHEUMATOID ARTHRITIS
     Route: 048
  3. GABAPENTIN [Concomitant]
     Indication: MUSCLE RELAXANT THERAPY
     Route: 048
  4. FENTANYL [Concomitant]
     Indication: PAIN
     Route: 062

REACTIONS (2)
  - CHEST PAIN [None]
  - HELICOBACTER INFECTION [None]
